FAERS Safety Report 4294290-6 (Version None)
Quarter: 2004Q1

REPORT INFORMATION
  Report Type: 
  Country: None (occurrence: None)
  Receive Date: 20040211
  Receipt Date: 20040203
  Transmission Date: 20041129
  Serious: Yes (Death, Hospitalization)
  Sender: FDA-Public Use
  Company Number: 2003UW17317

PATIENT
  Age: 72 Year
  Sex: Female
  Weight: 58.9676 kg

DRUGS (19)
  1. IRESSA [Suspect]
     Indication: NON-SMALL CELL LUNG CANCER METASTATIC
     Dosage: 250 MG DAILY PO
     Route: 048
     Dates: start: 20031201
  2. DIGITEK [Concomitant]
  3. TIKOSYN [Concomitant]
  4. NITROSTAT [Concomitant]
  5. MINITRAN [Concomitant]
  6. TOPROL-XL [Concomitant]
  7. NORVASC [Concomitant]
  8. ACTACT [Concomitant]
  9. ESTRADERM [Concomitant]
  10. BEXTRA [Concomitant]
  11. MECLIZINE [Concomitant]
  12. XANAX [Concomitant]
  13. ATROVENT [Concomitant]
  14. DICYCLOMINE [Concomitant]
  15. LOMOTIL [Concomitant]
  16. KLOR-CON [Concomitant]
  17. ASPIRIN [Concomitant]
  18. MAG-OX [Concomitant]
  19. FOLIC ACID [Concomitant]

REACTIONS (3)
  - PNEUMONIA [None]
  - PULMONARY EMBOLISM [None]
  - RASH [None]
